FAERS Safety Report 24441547 (Version 1)
Quarter: 2024Q4

REPORT INFORMATION
  Report Type: Spontaneous
  Country: FR (occurrence: FR)
  Receive Date: 20241016
  Receipt Date: 20241016
  Transmission Date: 20250115
  Serious: Yes (Life-Threatening)
  Sender: ACCORD
  Company Number: None

PATIENT
  Age: 70 Year
  Sex: Female

DRUGS (12)
  1. FUROSEMIDE [Suspect]
     Active Substance: FUROSEMIDE
     Indication: Diuretic therapy
     Dates: start: 20240104, end: 20240128
  2. TACROLIMUS [Suspect]
     Active Substance: TACROLIMUS
     Indication: Prophylaxis against transplant rejection
     Dosage: STRENGTH: 1 MG
     Dates: start: 20240124, end: 20240128
  3. VILDAGLIPTIN [Suspect]
     Active Substance: VILDAGLIPTIN
     Indication: Product used for unknown indication
     Dates: start: 20240124, end: 20240128
  4. MEROPENEM [Suspect]
     Active Substance: MEROPENEM
     Indication: Antibiotic therapy
     Dosage: STRENGTH: 1 G, POWDER FOR SOLUTION FOR INJECTION FOR INFUSION
     Dates: start: 20240120, end: 20240128
  5. MIANSERIN HYDROCHLORIDE [Suspect]
     Active Substance: MIANSERIN HYDROCHLORIDE
     Indication: Depression
     Dates: end: 20240124
  6. FUNGIZONE [Concomitant]
     Active Substance: AMPHOTERICIN B
     Dates: start: 20240104
  7. PREDNISONE [Concomitant]
     Active Substance: PREDNISONE
     Dates: start: 20240105
  8. LANSOPRAZOLE [Concomitant]
     Active Substance: LANSOPRAZOLE
  9. CELLCEPT [Concomitant]
     Active Substance: MYCOPHENOLATE MOFETIL
     Dates: start: 20240102
  10. ATORVASTATIN [Concomitant]
     Active Substance: ATORVASTATIN
     Dates: start: 20240104
  11. HEPARIN SODIUM [Concomitant]
     Active Substance: HEPARIN SODIUM
  12. TACROLIMUS [Suspect]
     Active Substance: TACROLIMUS
     Indication: Prophylaxis against transplant rejection
     Dosage: STRENGTH: 1 MG
     Dates: start: 20240102, end: 20240115

REACTIONS (1)
  - Coma [Recovered/Resolved]

NARRATIVE: CASE EVENT DATE: 20240127
